FAERS Safety Report 7522462-3 (Version None)
Quarter: 2011Q2

REPORT INFORMATION
  Report Type: 
  Country: None (occurrence: None)
  Receive Date: 20110603
  Receipt Date: 20110525
  Transmission Date: 20111010
  Serious: Yes (Other)
  Sender: FDA-Public Use
  Company Number: US-AMGEN-USASP2011027253

PATIENT
  Age: 36 Year
  Sex: Female

DRUGS (2)
  1. ENBREL [Suspect]
     Indication: RHEUMATOID ARTHRITIS
     Dosage: 50 MG, QWK
     Dates: start: 20050920, end: 20110502
  2. ENBREL [Suspect]
     Indication: SYSTEMIC LUPUS ERYTHEMATOSUS

REACTIONS (12)
  - DEPRESSION [None]
  - MOBILITY DECREASED [None]
  - FURUNCLE [None]
  - LOSS OF CONSCIOUSNESS [None]
  - STOMATITIS [None]
  - PHYSICAL ASSAULT [None]
  - ACTIVITIES OF DAILY LIVING IMPAIRED [None]
  - RHEUMATOID ARTHRITIS [None]
  - OEDEMA PERIPHERAL [None]
  - FATIGUE [None]
  - MOUTH CYST [None]
  - ONYCHOMADESIS [None]
